FAERS Safety Report 13220283 (Version 1)
Quarter: 2017Q1

REPORT INFORMATION
  Report Type: Spontaneous
  Country: FR (occurrence: FR)
  Receive Date: 20170210
  Receipt Date: 20170210
  Transmission Date: 20170428
  Serious: Yes (Hospitalization)
  Sender: FDA-Public Use
  Company Number: FR-SCIEGEN PHARMACEUTICALS INC-2017SCILIT00066

PATIENT
  Age: 52 Year
  Sex: Female

DRUGS (2)
  1. OXCARBAZEPINE. [Suspect]
     Active Substance: OXCARBAZEPINE
     Indication: EPILEPSY
     Dosage: UNKNOWN
     Route: 065
  2. LAMOTRIGINE TABLETS [Suspect]
     Active Substance: LAMOTRIGINE
     Indication: EPILEPSY
     Dosage: UNKNOWN
     Route: 065

REACTIONS (6)
  - Acute kidney injury [Unknown]
  - Nystagmus [Unknown]
  - Toxicity to various agents [Unknown]
  - Dizziness [Unknown]
  - Ataxia [Unknown]
  - Tachycardia [Recovered/Resolved]
